FAERS Safety Report 6426437-7 (Version None)
Quarter: 2009Q4

REPORT INFORMATION
  Report Type: 
  Country: None (occurrence: None)
  Receive Date: 20091104
  Receipt Date: 20091026
  Transmission Date: 20100525
  Serious: Yes (Other)
  Sender: FDA-Public Use
  Company Number: PHHY2009FI45734

PATIENT
  Sex: Female

DRUGS (1)
  1. FEMAR [Suspect]
     Indication: BREAST CANCER
     Dosage: 2.5 MG DAILY
     Dates: start: 20090720

REACTIONS (3)
  - MACULOPATHY [None]
  - VISION BLURRED [None]
  - VITREOUS DISORDER [None]
